FAERS Safety Report 11864254 (Version 4)
Quarter: 2016Q1

REPORT INFORMATION
  Report Type: Spontaneous
  Country: US (occurrence: US)
  Receive Date: 20151223
  Receipt Date: 20160226
  Transmission Date: 20160526
  Serious: Yes (Death, Hospitalization)
  Sender: FDA-Public Use
  Company Number: US-PFIZER INC-2015456193

PATIENT
  Age: 69 Year
  Sex: Female
  Weight: 43 kg

DRUGS (1)
  1. INLYTA [Suspect]
     Active Substance: AXITINIB
     Indication: RENAL CANCER METASTATIC
     Dosage: 5 MG, 1X/DAY (MONDAY THROUGH FRIDAY; 5 DAYS A WEEK 2 DAYS OFF
     Dates: start: 20151207, end: 20151211

REACTIONS (5)
  - Fatigue [Unknown]
  - Malaise [Not Recovered/Not Resolved]
  - Renal cancer metastatic [Unknown]
  - Disease progression [Unknown]
  - Death [Fatal]

NARRATIVE: CASE EVENT DATE: 20151225
